FAERS Safety Report 12234321 (Version 1)
Quarter: 2016Q2

REPORT INFORMATION
  Report Type: Spontaneous
  Country: US (occurrence: None)
  Receive Date: 20160401
  Receipt Date: 20160401
  Transmission Date: 20160815
  Serious: No
  Sender: FDA-Public Use
  Company Number: None

PATIENT
  Age: 52 Year
  Sex: Male

DRUGS (1)
  1. CEFTRIAXONE 1GM/10ML APOTEX [Suspect]
     Active Substance: CEFTRIAXONE
     Indication: SERRATIA SEPSIS
     Dosage: 1 GRAM EVERY 24 HOURS IVP VIA PICC LINE
     Dates: start: 20160212

REACTIONS (1)
  - Rash [None]

NARRATIVE: CASE EVENT DATE: 20160216
